FAERS Safety Report 9437061 (Version 1)
Quarter: 2013Q3

REPORT INFORMATION
  Report Type: Spontaneous
  Country: CH (occurrence: CH)
  Receive Date: 20130802
  Receipt Date: 20130802
  Transmission Date: 20140515
  Serious: Yes (Other)
  Sender: FDA-Public Use
  Company Number: CH-PFIZER INC-2013222283

PATIENT
  Age: 52 Year
  Sex: Male

DRUGS (1)
  1. TAZOBAC [Suspect]
     Indication: INFLAMMATION
     Route: 042

REACTIONS (4)
  - Renal failure acute [Unknown]
  - Renal tubular disorder [Unknown]
  - Anaemia [Unknown]
  - Platelet count increased [Unknown]
